FAERS Safety Report 10844082 (Version 2)
Quarter: 2015Q1

REPORT INFORMATION
  Report Type: Spontaneous
  Country: GB (occurrence: GB)
  Receive Date: 20150220
  Receipt Date: 20150302
  Transmission Date: 20150721
  Serious: Yes (Other)
  Sender: FDA-Public Use
  Company Number: GB-TEVA-541387ISR

PATIENT
  Sex: Male

DRUGS (3)
  1. CARBIDOPA/LEVODOPA [Suspect]
     Active Substance: CARBIDOPA\LEVODOPA
     Dosage: 500 MILLIGRAM DAILY;
     Route: 065
  2. ROPINIROLE XL [Suspect]
     Active Substance: ROPINIROLE
     Route: 065
  3. RASAGILINE [Suspect]
     Active Substance: RASAGILINE
     Route: 065

REACTIONS (7)
  - Memory impairment [Unknown]
  - Bradyphrenia [Unknown]
  - Hallucination [Unknown]
  - Dysuria [Unknown]
  - Cognitive disorder [Unknown]
  - Abnormal behaviour [Unknown]
  - Prostate cancer [Unknown]
